FAERS Safety Report 4586442-2 (Version None)
Quarter: 2005Q1

REPORT INFORMATION
  Report Type: 
  Country: None (occurrence: None)
  Receive Date: 20050218
  Receipt Date: 20050208
  Transmission Date: 20050727
  Serious: Yes (Hospitalization)
  Sender: FDA-Public Use
  Company Number: US-JNJFOC-20050100879

PATIENT
  Sex: Female
  Weight: 52.16 kg

DRUGS (9)
  1. INFLIXIMAB [Suspect]
     Route: 042
  2. INFLIXIMAB [Suspect]
     Route: 042
  3. INFLIXIMAB [Suspect]
     Route: 042
  4. INFLIXIMAB [Suspect]
     Indication: CROHN'S DISEASE
     Route: 042
  5. MERCAPTOPURINE [Suspect]
     Indication: CROHN'S DISEASE
  6. ACETAMINOPHEN [Concomitant]
  7. ACETAMINOPHEN [Concomitant]
     Indication: PREMEDICATION
  8. ANTI-HISTAMINE TAB [Concomitant]
  9. ANTI-HISTAMINE TAB [Concomitant]
     Indication: PREMEDICATION

REACTIONS (9)
  - DEHYDRATION [None]
  - INFLUENZA LIKE ILLNESS [None]
  - INFUSION RELATED REACTION [None]
  - JOINT STIFFNESS [None]
  - MOVEMENT DISORDER [None]
  - MUSCULOSKELETAL STIFFNESS [None]
  - MYALGIA [None]
  - PYREXIA [None]
  - RASH GENERALISED [None]
